FAERS Safety Report 5980360-0 (Version None)
Quarter: 2008Q4

REPORT INFORMATION
  Report Type: 
  Country: None (occurrence: None)
  Receive Date: 20081205
  Receipt Date: 20080204
  Transmission Date: 20090506
  Serious: No
  Sender: FDA-Public Use
  Company Number: A0682970A

PATIENT
  Age: 50 Year
  Sex: Female

DRUGS (2)
  1. COMMIT [Suspect]
     Dates: start: 20070918
  2. NICODERM CQ [Suspect]

REACTIONS (4)
  - DRY MOUTH [None]
  - LIP DISORDER [None]
  - PRODUCT QUALITY ISSUE [None]
  - SKIN IRRITATION [None]
